FAERS Safety Report 17084962 (Version 1)
Quarter: 2019Q4

REPORT INFORMATION
  Report Type: Spontaneous
  Country: US (occurrence: US)
  Receive Date: 20191127
  Receipt Date: 20191127
  Transmission Date: 20200122
  Serious: Yes (Other)
  Sender: FDA-Public Use
  Company Number: US-TEVA-2019-US-1144360

PATIENT
  Sex: Female

DRUGS (1)
  1. COPAXONE [Suspect]
     Active Substance: GLATIRAMER ACETATE
     Indication: MULTIPLE SCLEROSIS
     Route: 065
     Dates: start: 200202

REACTIONS (6)
  - Dystonia [Unknown]
  - Headache [Unknown]
  - Dizziness [Unknown]
  - Multiple sclerosis [Unknown]
  - Drug ineffective [Unknown]
  - Flushing [Unknown]

NARRATIVE: CASE EVENT DATE: 201906
